FAERS Safety Report 9528763 (Version 1)
Quarter: 2013Q3

REPORT INFORMATION
  Report Type: Spontaneous
  Country: US (occurrence: US)
  Receive Date: 20130917
  Receipt Date: 20130917
  Transmission Date: 20140515
  Serious: No
  Sender: FDA-Public Use
  Company Number: US-BANPHARM-20131339

PATIENT
  Age: 36 Year
  Sex: Female
  Weight: 78.47 kg

DRUGS (2)
  1. ZYRTEC LIQUID GELS 10 MG [Suspect]
     Indication: SEASONAL ALLERGY
     Dosage: 1 DF, QD,
     Route: 048
  2. BENADRYL [Concomitant]
     Indication: HYPERSENSITIVITY
     Dosage: 2 DF, QD,

REACTIONS (2)
  - Palpitations [Recovered/Resolved]
  - Feeling abnormal [Recovered/Resolved]
